FAERS Safety Report 13154907 (Version 1)
Quarter: 2017Q1

REPORT INFORMATION
  Report Type: Spontaneous
  Country: AU (occurrence: AU)
  Receive Date: 20170126
  Receipt Date: 20170126
  Transmission Date: 20170428
  Serious: Yes (Hospitalization)
  Sender: FDA-Public Use
  Company Number: AU-TELIGENT, INC-IGIL20170021

PATIENT
  Age: 6 Week
  Sex: Female

DRUGS (1)
  1. ZANTAC [Suspect]
     Active Substance: RANITIDINE HYDROCHLORIDE
     Indication: REFLUX GASTRITIS
     Route: 065
     Dates: start: 201701

REACTIONS (3)
  - Somnolence [Unknown]
  - Prescribed overdose [Unknown]
  - Drug prescribing error [None]

NARRATIVE: CASE EVENT DATE: 201701
